FAERS Safety Report 14992784 (Version 1)
Quarter: 2018Q2

REPORT INFORMATION
  Report Type: Spontaneous
  Country: DE (occurrence: DE)
  Receive Date: 20180609
  Receipt Date: 20180609
  Transmission Date: 20180711
  Serious: Yes (Hospitalization)
  Sender: FDA-Public Use
  Company Number: DE-TEVA-2018-DE-903766

PATIENT
  Age: 58 Year
  Sex: Male

DRUGS (5)
  1. LEVOTHYROXIN [Concomitant]
     Active Substance: LEVOTHYROXINE
     Dosage: 1.5-0-0-0
     Route: 065
  2. FOLSAEURE [Concomitant]
     Active Substance: FOLIC ACID
     Dosage: 1X/W
     Route: 065
  3. TIMONIL [Suspect]
     Active Substance: CARBAMAZEPINE
     Dosage: 1-0-1-0
     Route: 065
  4. DECORTIN [Concomitant]
     Active Substance: PREDNISONE
     Dosage: 1-0-0-0
     Route: 065
  5. METHOTREXATE. [Suspect]
     Active Substance: METHOTREXATE
     Route: 065

REACTIONS (3)
  - Syncope [Unknown]
  - Dizziness [Unknown]
  - Nausea [Unknown]
